FAERS Safety Report 6816467-5 (Version None)
Quarter: 2010Q2

REPORT INFORMATION
  Report Type: 
  Country: None (occurrence: None)
  Receive Date: 20100630
  Receipt Date: 20100621
  Transmission Date: 20101027
  Serious: Yes (Life-Threatening, Other)
  Sender: FDA-Public Use
  Company Number: LTI2010A00140

PATIENT
  Age: 60 Year
  Sex: Female

DRUGS (5)
  1. ACTOPLUS MET [Suspect]
     Indication: TYPE 2 DIABETES MELLITUS
     Dosage: 1 DF (1 DF, 1 IN 1 D) ORAL
     Route: 048
     Dates: start: 20091211, end: 20100216
  2. INSULATARD NPH HUMAN [Concomitant]
  3. REPAGLINIDE [Concomitant]
  4. EZETIMIBE/SIMVASTATIN [Concomitant]
  5. RAMIPRIL [Concomitant]

REACTIONS (3)
  - CORONARY ARTERY STENOSIS [None]
  - PULMONARY ARTERIAL HYPERTENSION [None]
  - TACHYCARDIA [None]
